FAERS Safety Report 11434562 (Version 2)
Quarter: 2015Q4

REPORT INFORMATION
  Report Type: Spontaneous
  Country: JP (occurrence: JP)
  Receive Date: 20150831
  Receipt Date: 20151027
  Transmission Date: 20160304
  Serious: Yes (Death, Other)
  Sender: FDA-Public Use
  Company Number: JP-PFIZER INC-2015221373

PATIENT
  Age: 83 Year
  Sex: Female
  Weight: 44 kg

DRUGS (7)
  1. ALBUMIN [Concomitant]
     Active Substance: ALBUMIN (HUMAN)
     Indication: HYPOALBUMINAEMIA
     Dosage: 250 ML, 2X/DAY
     Route: 042
     Dates: start: 20150626, end: 20150708
  2. FLAGYL [Concomitant]
     Active Substance: METRONIDAZOLE\METRONIDAZOLE HYDROCHLORIDE
     Indication: PSEUDOMEMBRANOUS COLITIS
     Dosage: 250 MG, 4X/DAY
     Route: 048
     Dates: start: 20150623, end: 20150625
  3. ONOACT [Concomitant]
     Active Substance: LANDIOLOL HYDROCHLORIDE
     Indication: ARRHYTHMIA
     Dosage: 250 MG, 2X/DAY
     Route: 042
     Dates: start: 20150626, end: 20150710
  4. PROPOFOL. [Concomitant]
     Active Substance: PROPOFOL
     Indication: SEDATION
     Dosage: 1000 MG, 2X/DAY
     Route: 042
     Dates: start: 20150623, end: 20150715
  5. ANAEMETRO [Suspect]
     Active Substance: METRONIDAZOLE
     Indication: PSEUDOMEMBRANOUS COLITIS
     Dosage: 2000 MG, DAILY
     Route: 041
     Dates: start: 20150626
  6. ADRENALINE /00003901/ [Concomitant]
     Active Substance: EPINEPHRINE
     Indication: BLOOD PRESSURE DECREASED
     Dosage: 1 MG, 1X/DAY
     Route: 042
     Dates: start: 20150626, end: 20150710
  7. VANCOMYCIN HYDROCHLORIDE. [Concomitant]
     Active Substance: VANCOMYCIN HYDROCHLORIDE
     Dosage: UNK
     Route: 054
     Dates: start: 20150625

REACTIONS (3)
  - Septic shock [Fatal]
  - Pneumonia [Fatal]
  - Seizure [Recovering/Resolving]

NARRATIVE: CASE EVENT DATE: 20150627
